FAERS Safety Report 5594198-X (Version None)
Quarter: 2008Q1

REPORT INFORMATION
  Report Type: 
  Country: None (occurrence: None)
  Receive Date: 20080115
  Receipt Date: 20080108
  Transmission Date: 20080703
  Serious: Yes (Hospitalization, Disabling)
  Sender: FDA-Public Use
  Company Number: WAES 0711USA02043

PATIENT
  Age: 56 Year
  Sex: Male
  Weight: 68.0396 kg

DRUGS (23)
  1. CAP VORINOSTAT 200 MG [Suspect]
     Indication: NON-SMALL CELL LUNG CANCER
     Dosage: BID/PO
     Route: 048
     Dates: start: 20070710, end: 20071025
  2. TAB ERLOTINIB HYDROCHLORIDE 150 MG [Suspect]
     Indication: NON-SMALL CELL LUNG CANCER
     Dosage: DAILY/PO
     Route: 048
     Dates: start: 20070710, end: 20071030
  3. ALTACE [Concomitant]
  4. ATIVAN [Concomitant]
  5. CENTRUM SILVER [Concomitant]
  6. EXCEDRIN (ACETAMINOPHEN (+) CAFFO [Concomitant]
  7. LOMOTIL [Concomitant]
  8. SOMA [Concomitant]
  9. ZYRTEC-D [Concomitant]
  10. [THERAPY UNSPECIFIED] [Concomitant]
  11. ACETAMINOPHEN (+) HYDROCODONE BI [Concomitant]
  12. ASCORBIC ACID [Concomitant]
  13. CARISOPRODOL [Concomitant]
  14. CLINDAMYCIN HCL [Concomitant]
  15. DOXYCYCLINE [Concomitant]
  16. FOLIC ACID [Concomitant]
  17. INSULIN [Concomitant]
  18. INSULIN, ISOPHANE [Concomitant]
  19. PRAVASTATIN SODIUM [Concomitant]
  20. PROCHLORPERAZINE MALEATE [Concomitant]
  21. TEA [Concomitant]
  22. TURMERIC [Concomitant]
  23. VITAMIN B (UNSPECIFIED) [Concomitant]

REACTIONS (6)
  - ASTHENIA [None]
  - DISEASE PROGRESSION [None]
  - DISORIENTATION [None]
  - FALL [None]
  - SYNCOPE [None]
  - URINARY RETENTION [None]
